FAERS Safety Report 6290786-6 (Version None)
Quarter: 2009Q3

REPORT INFORMATION
  Report Type: 
  Country: None (occurrence: None)
  Receive Date: 20090730
  Receipt Date: 20090727
  Transmission Date: 20100115
  Serious: Yes (Death)
  Sender: FDA-Public Use
  Company Number: PHHY2009DK30975

PATIENT
  Sex: Male
  Weight: 93 kg

DRUGS (7)
  1. RASILEZ HCT [Suspect]
     Indication: HYPERTENSION
     Dosage: ONE TABLET DAILY
     Dates: start: 20090617
  2. ATACAND [Interacting]
     Dosage: 32 MG, QD
     Dates: start: 20060401
  3. DIGOXIN [Interacting]
     Indication: ATRIAL FIBRILLATION
     Dosage: 250 UG, QD
     Dates: start: 20080601
  4. SELO-ZOK [Interacting]
     Dosage: 100 MG, BID
     Dates: start: 20061001
  5. MAREVAN [Concomitant]
     Indication: ATRIAL FIBRILLATION
     Dosage: 2.5 MG
     Dates: start: 20070401
  6. FURIX [Concomitant]
     Dosage: 40 MG, QD
     Dates: start: 20070201
  7. POTASSIUM CHLORIDE [Concomitant]
     Dosage: 750 MG, QD
     Dates: start: 20070201

REACTIONS (3)
  - CYANOSIS [None]
  - DRUG INTERACTION [None]
  - DYSPNOEA [None]
